FAERS Safety Report 10158078 (Version 3)
Quarter: 2014Q2

REPORT INFORMATION
  Report Type: Spontaneous
  Country: CA (occurrence: CA)
  Receive Date: 20140507
  Receipt Date: 20140603
  Transmission Date: 20141212
  Serious: Yes (Hospitalization)
  Sender: FDA-Public Use
  Company Number: CA-PFIZER INC-2014000856

PATIENT
  Age: 62 Year
  Sex: Male

DRUGS (10)
  1. INLYTA [Suspect]
     Indication: RENAL CELL CARCINOMA
     Dosage: 10 MG, UNK
  2. INLYTA [Suspect]
     Dosage: 7 MG, UNK
  3. INLYTA [Suspect]
     Dosage: 5 MG, UNK
     Dates: start: 20130823, end: 201311
  4. INLYTA [Suspect]
     Dosage: 5 MG, 1X/DAY
     Route: 048
     Dates: start: 20131216, end: 20140113
  5. WARFARIN [Suspect]
     Dosage: UNK
  6. SYNTHROID [Concomitant]
     Indication: HYPOTHYROIDISM
     Dosage: 75 UG, 1X/DAY
  7. NORVASC [Concomitant]
     Dosage: UNK
  8. METFORMIN [Concomitant]
     Indication: DIABETES MELLITUS
     Dosage: UNK
  9. HYDROCHLOROTHIAZIDE [Concomitant]
     Dosage: UNK
  10. DIPHENHYDRAMINE [Concomitant]
     Dosage: UNK

REACTIONS (4)
  - Haemorrhagic stroke [Recovered/Resolved]
  - International normalised ratio increased [Unknown]
  - Nausea [Unknown]
  - Fatigue [Not Recovered/Not Resolved]
